FAERS Safety Report 10058138 (Version 1)
Quarter: 2014Q2

REPORT INFORMATION
  Report Type: Spontaneous
  Country: US (occurrence: US)
  Receive Date: 20140404
  Receipt Date: 20140404
  Transmission Date: 20141212
  Serious: No
  Sender: FDA-Public Use
  Company Number: US-B.I. PHARMACEUTICALS,INC./RIDGEFIELD-2014-BI-13159BP

PATIENT
  Age: 73 Year
  Sex: Female
  Weight: 37 kg

DRUGS (9)
  1. SPIRIVA [Suspect]
     Indication: EMPHYSEMA
     Dosage: 18 MCG
     Route: 055
     Dates: start: 2011
  2. SPIRIVA [Suspect]
     Dosage: 18 MCG
     Route: 048
  3. ADVAIR [Concomitant]
     Dosage: FORMULATION: INHALATION SPRAY
     Route: 055
  4. PRO-AIR [Concomitant]
     Dosage: FORMULATION: INHALATION SPRAY
     Route: 055
  5. ALBUTEROL NEBULIZER [Concomitant]
     Dosage: FORMULATION: INHALATION SOLUTION
     Route: 055
  6. CARVEDILOL [Concomitant]
     Route: 048
  7. HYDROCHLOROTHIAZIDE [Concomitant]
     Indication: FLUID RETENTION
     Route: 048
  8. LOSARTAN [Concomitant]
     Route: 048
  9. ATORVASTATIN [Concomitant]
     Indication: BLOOD CHOLESTEROL INCREASED
     Route: 048

REACTIONS (2)
  - Amnesia [Not Recovered/Not Resolved]
  - Incorrect route of drug administration [Recovered/Resolved]
